FAERS Safety Report 9008890 (Version 4)
Quarter: 2013Q1

REPORT INFORMATION
  Report Type: Spontaneous
  Country: US (occurrence: US)
  Receive Date: 20130111
  Receipt Date: 20130327
  Transmission Date: 20140127
  Serious: Yes (Death, Hospitalization)
  Sender: FDA-Public Use
  Company Number: US-GILEAD-2013-0067738

PATIENT
  Age: 63 Year
  Sex: Male

DRUGS (13)
  1. LETAIRIS [Suspect]
     Indication: PORTAL HYPERTENSION
     Route: 048
     Dates: start: 20121002
  2. LETAIRIS [Suspect]
     Indication: HEPATIC CIRRHOSIS
  3. LETAIRIS [Suspect]
     Indication: HEPATIC FAILURE
  4. ADCIRCA [Concomitant]
  5. ASPIRIN [Concomitant]
     Indication: CORONARY ARTERY DISEASE
  6. FERROUS SULFATE [Concomitant]
     Indication: ANAEMIA
  7. FOLBIC [Concomitant]
     Indication: SUPPLEMENTATION THERAPY
  8. LASIX                              /00032601/ [Concomitant]
     Indication: DIURETIC THERAPY
  9. LIPITOR [Concomitant]
     Indication: LUNG DISORDER
  10. SPIRONOLACTONE [Concomitant]
     Indication: DIURETIC THERAPY
  11. TOPROL [Concomitant]
     Indication: HYPERTENSION
  12. WARFARIN [Concomitant]
     Indication: ANTICOAGULANT THERAPY
  13. COUMADINE [Concomitant]

REACTIONS (4)
  - Hepatic failure [Fatal]
  - Thrombosis [Unknown]
  - Atrial fibrillation [Unknown]
  - Traumatic haemorrhage [Fatal]
